FAERS Safety Report 5701489-8 (Version None)
Quarter: 2008Q2

REPORT INFORMATION
  Report Type: 
  Country: None (occurrence: None)
  Receive Date: 20080410
  Receipt Date: 20080402
  Transmission Date: 20081010
  Serious: Yes (Death, Life-Threatening, Hospitalization)
  Sender: FDA-Public Use
  Company Number: US-GENENTECH-258123

PATIENT
  Sex: Female

DRUGS (22)
  1. BEVACIZUMAB [Suspect]
     Indication: BREAST CANCER
     Dosage: 675 MG, UNK
     Route: 042
     Dates: start: 20070201
  2. BEVACIZUMAB [Suspect]
     Dosage: 1013 MG, UNK
     Route: 042
     Dates: start: 20071205
  3. ADRIAMYCIN PFS [Suspect]
     Indication: BREAST CANCER
     Dosage: 108 MG, UNKNOWN
     Route: 065
     Dates: start: 20070201
  4. CYTOXAN [Suspect]
     Indication: BREAST CANCER
     Dosage: 1085 MG, UNKNOWN
     Route: 065
     Dates: start: 20070201
  5. TAXOL [Suspect]
     Indication: BREAST CANCER
     Dosage: 315 MG, UNKNOWN
     Route: 065
     Dates: start: 20070329
  6. NEULASTA [Suspect]
     Indication: BREAST CANCER
     Dosage: 6 MG, UNKNOWN
     Route: 065
     Dates: start: 20070202
  7. XELODA [Concomitant]
     Indication: DRUG USE FOR UNKNOWN INDICATION
     Route: 048
  8. CEFEPIME [Concomitant]
     Indication: DRUG USE FOR UNKNOWN INDICATION
  9. ANTITUBERCULOUS AGENTS [Concomitant]
     Indication: DRUG USE FOR UNKNOWN INDICATION
  10. ALBUMIN (HUMAN) [Concomitant]
     Indication: DRUG USE FOR UNKNOWN INDICATION
  11. FUROSEMIDE [Concomitant]
     Indication: DRUG USE FOR UNKNOWN INDICATION
  12. ALPRAZOLAM [Concomitant]
     Indication: DRUG USE FOR UNKNOWN INDICATION
  13. ARANESP [Concomitant]
     Indication: DRUG USE FOR UNKNOWN INDICATION
  14. DARBEPOETIN ALFA [Concomitant]
     Indication: DRUG USE FOR UNKNOWN INDICATION
  15. CALCIUM GLUCONATE [Concomitant]
     Indication: DRUG USE FOR UNKNOWN INDICATION
  16. CAPECITABINE [Concomitant]
     Indication: DRUG USE FOR UNKNOWN INDICATION
  17. FAMOTIDINE [Concomitant]
     Indication: DRUG USE FOR UNKNOWN INDICATION
  18. FENTANYL [Concomitant]
     Indication: DRUG USE FOR UNKNOWN INDICATION
  19. METHYLPREDNISOLONE [Concomitant]
     Indication: DRUG USE FOR UNKNOWN INDICATION
  20. PIPERACILLIN AND TAZOBACTAM [Concomitant]
     Indication: DRUG USE FOR UNKNOWN INDICATION
  21. PROCHLORPERAZINE [Concomitant]
     Indication: DRUG USE FOR UNKNOWN INDICATION
  22. PROPOXYPHENE HYDROCHLORIDE [Concomitant]
     Indication: DRUG USE FOR UNKNOWN INDICATION

REACTIONS (1)
  - CARDIAC ARREST [None]
